FAERS Safety Report 8937835 (Version 1)
Quarter: 2012Q4

REPORT INFORMATION
  Report Type: Spontaneous
  Country: US (occurrence: None)
  Receive Date: 20121128
  Receipt Date: 20121128
  Transmission Date: 20130627
  Serious: Yes (Other)
  Sender: FDA-Public Use
  Company Number: None

PATIENT
  Age: 69 Year
  Sex: Male
  Weight: 90.72 kg

DRUGS (1)
  1. ALPRAZOLAM 0.5MG SUN PHARMA [Suspect]
     Indication: ANXIETY
     Dosage: 0.5MG 3 TIMES DAILY PO
     Route: 048
     Dates: start: 20120901, end: 20121126

REACTIONS (2)
  - Drug ineffective [None]
  - Product substitution issue [None]
